FAERS Safety Report 13406375 (Version 1)
Quarter: 2017Q2

REPORT INFORMATION
  Report Type: Spontaneous
  Country: US (occurrence: US)
  Receive Date: 20170405
  Receipt Date: 20170405
  Transmission Date: 20170830
  Serious: No
  Sender: FDA-Public Use
  Company Number: US-SA-2017SA042113

PATIENT
  Age: 67 Year
  Sex: Male

DRUGS (2)
  1. CHILDREN^S ALLERGY, ORALLY DISINTEGRATING TABLETS [Suspect]
     Active Substance: FEXOFENADINE HYDROCHLORIDE
     Route: 048
  2. CHILDREN^S ALLERGY, ORALLY DISINTEGRATING TABLETS [Suspect]
     Active Substance: FEXOFENADINE HYDROCHLORIDE
     Route: 048

REACTIONS (1)
  - Product taste abnormal [Unknown]
